FAERS Safety Report 7584124-6 (Version None)
Quarter: 2011Q2

REPORT INFORMATION
  Report Type: 
  Country: None (occurrence: None)
  Receive Date: 20110630
  Receipt Date: 20110627
  Transmission Date: 20111010
  Serious: Yes (Hospitalization)
  Sender: FDA-Public Use
  Company Number: FR-PFIZER INC-2011141859

PATIENT
  Age: 51 Year
  Sex: Female

DRUGS (6)
  1. LANTUS [Concomitant]
  2. GLIMEPIRIDE [Concomitant]
  3. AMLODIPINE/OLMESARTAN MEDOXOMIL [Suspect]
     Indication: HYPERTENSION
     Dosage: UNK
     Route: 048
     Dates: start: 20110324, end: 20110415
  4. LYRICA [Suspect]
     Indication: NEUROPATHY PERIPHERAL
     Dosage: UNK
     Route: 048
     Dates: start: 20100212, end: 20110415
  5. NEBIVOLOL [Concomitant]
     Dosage: UNK
     Dates: start: 20110324
  6. CRESTOR [Suspect]
     Dosage: UNK
     Route: 048
     Dates: start: 20091006, end: 20110415

REACTIONS (1)
  - HEPATITIS CHOLESTATIC [None]
